FAERS Safety Report 23295440 (Version 1)
Quarter: 2023Q4

REPORT INFORMATION
  Report Type: Spontaneous
  Country: US (occurrence: US)
  Receive Date: 20231214
  Receipt Date: 20231214
  Transmission Date: 20240110
  Serious: Yes (Disabling)
  Sender: FDA-Public Use
  Company Number: US-SA-SAC20231213000845

PATIENT
  Sex: Female
  Weight: 78 kg

DRUGS (13)
  1. DUPIXENT [Suspect]
     Active Substance: DUPILUMAB
     Indication: Asthma
     Dosage: 300 MG, QOW
     Route: 058
     Dates: start: 202203
  2. MONTELUKAST SODIUM [Concomitant]
     Active Substance: MONTELUKAST SODIUM
  3. ATROPINE\DIPHENOXYLATE [Concomitant]
     Active Substance: ATROPINE\DIPHENOXYLATE
  4. METFORMIN HYDROCHLORIDE [Concomitant]
     Active Substance: METFORMIN HYDROCHLORIDE
  5. MELOXICAM [Concomitant]
     Active Substance: MELOXICAM
  6. FUROSEMIDE [Concomitant]
     Active Substance: FUROSEMIDE
  7. AMLODIPINE BESYLATE [Concomitant]
     Active Substance: AMLODIPINE BESYLATE
  8. ALBUTEROL SULFATE [Concomitant]
     Active Substance: ALBUTEROL SULFATE
  9. ROSUVASTATIN CALCIUM [Concomitant]
     Active Substance: ROSUVASTATIN CALCIUM
  10. TRAZODONE HCL [Concomitant]
     Active Substance: TRAZODONE HYDROCHLORIDE
  11. GABAPENTIN [Concomitant]
     Active Substance: GABAPENTIN
  12. LOSARTAN POTASSIUM [Concomitant]
     Active Substance: LOSARTAN POTASSIUM
  13. TRULICITY [Concomitant]
     Active Substance: DULAGLUTIDE

REACTIONS (3)
  - Loss of personal independence in daily activities [Unknown]
  - Middle insomnia [Unknown]
  - Asthma [Unknown]
